FAERS Safety Report 9654260 (Version 2)
Quarter: 2013Q4

REPORT INFORMATION
  Report Type: Spontaneous
  Country: US (occurrence: US)
  Receive Date: 20131029
  Receipt Date: 20131202
  Transmission Date: 20140711
  Serious: No
  Sender: FDA-Public Use
  Company Number: US-BIOGENIDEC-2013BI084246

PATIENT
  Age: 69 Year
  Sex: Female

DRUGS (8)
  1. TECFIDERA [Suspect]
     Indication: MULTIPLE SCLEROSIS
     Route: 048
     Dates: start: 20130529
  2. TECFIDERA [Suspect]
     Indication: MULTIPLE SCLEROSIS
     Route: 048
     Dates: start: 20130801
  3. ACTONEL [Concomitant]
  4. AMLODIPINE BESYLATE [Concomitant]
  5. BABY ASPIRIN [Concomitant]
  6. BENAZEPRIL HCL [Concomitant]
  7. CALCIUM [Concomitant]
  8. CLONIDINE HCL [Concomitant]

REACTIONS (10)
  - Night sweats [Not Recovered/Not Resolved]
  - Adverse event [Not Recovered/Not Resolved]
  - Anaemia [Recovered/Resolved]
  - Renal disorder [Not Recovered/Not Resolved]
  - Multiple sclerosis [Recovered/Resolved]
  - Fatigue [Recovered/Resolved]
  - Cold sweat [Not Recovered/Not Resolved]
  - Pruritus [Not Recovered/Not Resolved]
  - Flushing [Not Recovered/Not Resolved]
  - Hot flush [Not Recovered/Not Resolved]
